FAERS Safety Report 8171022-2 (Version None)
Quarter: 2012Q1

REPORT INFORMATION
  Report Type: 
  Country: None (occurrence: None)
  Receive Date: 20120228
  Receipt Date: 20120221
  Transmission Date: 20120608
  Serious: Yes (Death)
  Sender: FDA-Public Use
  Company Number: FR-UCBSA-008433

PATIENT
  Age: 46 Year
  Sex: Male

DRUGS (8)
  1. NICARDIPINE HYDROCHLORIDE [Suspect]
     Dosage: DAILY DOSE - ONE UNIT
     Route: 048
     Dates: start: 20100101, end: 20100202
  2. ASPEGIC 1000 [Suspect]
     Route: 048
     Dates: start: 20100103
  3. PROPOFOL [Suspect]
     Indication: SEDATION
     Dates: start: 20100103
  4. KEPPRA [Suspect]
     Dosage: DAILY DOSE - ONE UNIT
     Route: 048
     Dates: start: 20100101, end: 20100202
  5. LOVENOX [Suspect]
     Route: 058
     Dates: start: 20091003, end: 20100202
  6. FENTANYL [Suspect]
     Indication: SEDATION
     Dates: start: 20100101
  7. AUGMENTIN '125' [Suspect]
     Route: 048
     Dates: start: 20091003
  8. LIORESAL [Suspect]
     Route: 048
     Dates: start: 20100101

REACTIONS (6)
  - MULTI-ORGAN FAILURE [None]
  - SEPTIC SHOCK [None]
  - TOXIC EPIDERMAL NECROLYSIS [None]
  - INTRACRANIAL PRESSURE INCREASED [None]
  - ASPIRATION [None]
  - PNEUMONIA BACTERIAL [None]
